FAERS Safety Report 18265798 (Version 1)
Quarter: 2020Q3

REPORT INFORMATION
  Report Type: Spontaneous
  Country: US (occurrence: US)
  Receive Date: 20200915
  Receipt Date: 20200915
  Transmission Date: 20201103
  Serious: Yes (Hospitalization)
  Sender: FDA-Public Use
  Company Number: US-LUPIN PHARMACEUTICALS INC.-2020-05927

PATIENT
  Age: 16 Year
  Sex: Female

DRUGS (13)
  1. SULFAMETHOXAZOLE AND TRIMETHOPRIM [Suspect]
     Active Substance: SULFAMETHOXAZOLE\TRIMETHOPRIM
     Indication: PYOMETRA
     Dosage: UNK (COTRIMOXAZOLE)
     Route: 065
  2. GENTAMICIN. [Suspect]
     Active Substance: GENTAMICIN
     Indication: PYOMETRA
     Dosage: UNK
     Route: 042
  3. CEFDINIR. [Suspect]
     Active Substance: CEFDINIR
     Indication: PYOMETRA
     Dosage: UNK
     Route: 065
  4. DOXYCYCLINE. [Suspect]
     Active Substance: DOXYCYCLINE
     Indication: PYOMETRA
     Dosage: UNK (ADMINISTERED 24 HOURS DURING HOSPITALISATION)
     Route: 048
  5. DEPO?PROVERA [Concomitant]
     Active Substance: MEDROXYPROGESTERONE ACETATE
     Indication: UTERINE HAEMORRHAGE
     Dosage: UNK (DEPOT MEDROXYPROGESTERONE INJECTION RECEIVING FROM THE AGE OF 10 YEARS)
     Route: 065
  6. LEVONORGESTREL. [Concomitant]
     Active Substance: LEVONORGESTREL
     Indication: HORMONE THERAPY
     Dosage: UNK
     Route: 015
  7. VANCOMYCIN [Suspect]
     Active Substance: VANCOMYCIN
     Indication: PYOMETRA
     Dosage: UNK
     Route: 042
  8. LEVOFLOXACIN. [Suspect]
     Active Substance: LEVOFLOXACIN
     Indication: PYOMETRA
     Dosage: UNK
     Route: 065
  9. CEFOXITIN [Suspect]
     Active Substance: CEFOXITIN SODIUM
     Indication: PYOMETRA
     Dosage: UNK
     Route: 042
  10. DOXYCYCLINE. [Suspect]
     Active Substance: DOXYCYCLINE
     Dosage: UNK (ADMINISTERED 14 DAYS AFTER THE DISCHARGED FROM HOSPITAL)
     Route: 048
  11. CLINDAMYCIN. [Suspect]
     Active Substance: CLINDAMYCIN
     Indication: PYOMETRA
     Dosage: UNK
     Route: 065
  12. CEFTRIAXONE. [Suspect]
     Active Substance: CEFTRIAXONE
     Indication: PYOMETRA
     Dosage: UNK
     Route: 042
  13. NORMAL SALINE [Concomitant]
     Active Substance: SODIUM CHLORIDE
     Indication: IRRIGATION THERAPY
     Dosage: UNK
     Route: 065

REACTIONS (1)
  - Treatment failure [Unknown]
